FAERS Safety Report 22232477 (Version 2)
Quarter: 2023Q4

REPORT INFORMATION
  Report Type: Report from Study
  Country: BR (occurrence: BR)
  Receive Date: 20230420
  Receipt Date: 20231007
  Transmission Date: 20240109
  Serious: Yes (Other)
  Sender: FDA-Public Use
  Company Number: BR-JNJFOC-20221164699

PATIENT
  Age: 58 Year
  Sex: Female
  Weight: 79 kg

DRUGS (2)
  1. INFLIXIMAB [Suspect]
     Active Substance: INFLIXIMAB
     Indication: Crohn^s disease
     Route: 041
  2. REMICADE [Suspect]
     Active Substance: INFLIXIMAB
     Indication: Crohn^s disease
     Dosage: DOSAGE REPORTED AS 4 VIALS
     Route: 041
     Dates: end: 20220729

REACTIONS (5)
  - Tuberculosis [Unknown]
  - Mumps [Unknown]
  - Intervertebral disc protrusion [Unknown]
  - Tendonitis [Unknown]
  - Influenza [Unknown]

NARRATIVE: CASE EVENT DATE: 20220801
